FAERS Safety Report 6504173-6 (Version None)
Quarter: 2009Q4

REPORT INFORMATION
  Report Type: 
  Country: None (occurrence: None)
  Receive Date: 20091217
  Receipt Date: 20091208
  Transmission Date: 20100525
  Serious: Yes (Death, Other)
  Sender: FDA-Public Use
  Company Number: NZ-ABBOTT-09P-118-0599351-00

PATIENT
  Sex: Female
  Weight: 102 kg

DRUGS (7)
  1. REDUCTIL [Suspect]
     Indication: DRUG USE FOR UNKNOWN INDICATION
     Dates: start: 20080718
  2. REDUCTIL [Suspect]
     Dates: start: 20080815
  3. REDUCTIL [Suspect]
     Dates: start: 20080918
  4. REDUCTIL [Suspect]
     Dates: start: 20081212
  5. REDUCTIL [Suspect]
     Dates: start: 20081215
  6. REDUCTIL [Suspect]
     Dates: start: 20090212
  7. HYOSCINE [Concomitant]
     Indication: BILIARY COLIC

REACTIONS (3)
  - ARRHYTHMIA [None]
  - CARDIOMEGALY [None]
  - CORONARY ARTERY DISEASE [None]
